FAERS Safety Report 14596412 (Version 2)
Quarter: 2018Q2

REPORT INFORMATION
  Report Type: Spontaneous
  Country: US (occurrence: US)
  Receive Date: 20180303
  Receipt Date: 20180504
  Transmission Date: 20180711
  Serious: No
  Sender: FDA-Public Use
  Company Number: US-JNJFOC-20180221369

PATIENT
  Age: 30 Year
  Sex: Male

DRUGS (2)
  1. CAFFEINE. [Suspect]
     Active Substance: CAFFEINE
     Indication: PRODUCT USED FOR UNKNOWN INDICATION
     Route: 048
  2. INVEGA SUSTENNA [Suspect]
     Active Substance: PALIPERIDONE PALMITATE
     Indication: PRODUCT USED FOR UNKNOWN INDICATION
     Route: 030

REACTIONS (8)
  - Inappropriate schedule of drug administration [Unknown]
  - Lethargy [Recovered/Resolved]
  - Anxiety [Recovered/Resolved]
  - Product use issue [Unknown]
  - Dysarthria [Recovered/Resolved]
  - Feeling jittery [Recovered/Resolved]
  - Off label use [Unknown]
  - Disorientation [Recovered/Resolved]

NARRATIVE: CASE EVENT DATE: 20180212
